FAERS Safety Report 7572054-5 (Version None)
Quarter: 2011Q2

REPORT INFORMATION
  Report Type: 
  Country: None (occurrence: None)
  Receive Date: 20110624
  Receipt Date: 20110617
  Transmission Date: 20111010
  Serious: Yes (Hospitalization)
  Sender: FDA-Public Use
  Company Number: MX-SANOFI-AVENTIS-2011SA038815

PATIENT
  Age: 85 Year
  Sex: Male
  Weight: 85 kg

DRUGS (7)
  1. RANISEN [Concomitant]
     Route: 048
     Dates: end: 20110519
  2. AVODART [Concomitant]
     Indication: BENIGN PROSTATIC HYPERPLASIA
     Route: 048
     Dates: start: 20050101, end: 20110519
  3. PLAVIX [Suspect]
     Route: 048
     Dates: start: 20090101
  4. ALLOPURINOL [Concomitant]
     Route: 048
     Dates: end: 20110519
  5. BI-EUGLUCON [Concomitant]
     Route: 048
     Dates: start: 19910101, end: 20110519
  6. ATIVAN [Concomitant]
     Indication: INSOMNIA
     Route: 048
     Dates: start: 20070101, end: 20110519
  7. LYRICA [Concomitant]
     Route: 048
     Dates: start: 20110201, end: 20110519

REACTIONS (4)
  - SPINAL LAMINECTOMY [None]
  - NEURALGIA [None]
  - MEDICATION ERROR [None]
  - ACTIVITIES OF DAILY LIVING IMPAIRED [None]
